FAERS Safety Report 8147012-2 (Version None)
Quarter: 2012Q1

REPORT INFORMATION
  Report Type: 
  Country: None (occurrence: None)
  Receive Date: 20120217
  Receipt Date: 20120208
  Transmission Date: 20120608
  Serious: Yes (Other)
  Sender: FDA-Public Use
  Company Number: US-ASTRAZENECA-2010SE10731

PATIENT
  Age: 83 Year
  Sex: Female
  Weight: 57.2 kg

DRUGS (6)
  1. SYMBICORT [Suspect]
     Indication: ASTHMA
     Dosage: 640 MCG, TWO TIMES A DAY
     Route: 055
     Dates: start: 20100217
  2. SYMBICORT [Suspect]
     Indication: CHRONIC OBSTRUCTIVE PULMONARY DISEASE
     Dosage: 640 MCG, TWO TIMES A DAY
     Route: 055
     Dates: start: 20100217
  3. VITAMIN TAB [Concomitant]
  4. SYMBICORT [Suspect]
     Dosage: 160/4.5 MCG, TWO PUFFS, TWO TIMES A DAY
     Route: 055
  5. SYMBICORT [Suspect]
     Dosage: 160/4.5 MCG, TWO PUFFS, TWO TIMES A DAY
     Route: 055
  6. OMEPRAZOLE [Concomitant]
     Route: 048

REACTIONS (11)
  - CATARACT [None]
  - PRODUCTIVE COUGH [None]
  - HEPATIC ENZYME INCREASED [None]
  - PYREXIA [None]
  - GLAUCOMA [None]
  - DRUG EFFECT DECREASED [None]
  - SINUS HEADACHE [None]
  - THROAT IRRITATION [None]
  - ASTHENOPIA [None]
  - MACULAR DEGENERATION [None]
  - UPPER-AIRWAY COUGH SYNDROME [None]
